FAERS Safety Report 10067427 (Version 1)
Quarter: 2014Q2

REPORT INFORMATION
  Report Type: Spontaneous
  Country: US (occurrence: None)
  Receive Date: 20140407
  Receipt Date: 20140407
  Transmission Date: 20141212
  Serious: Yes (Hospitalization)
  Sender: FDA-Public Use
  Company Number: UTC-046089

PATIENT
  Age: 77 Year
  Sex: Male
  Weight: 117.9 kg

DRUGS (1)
  1. TYVASO [Suspect]
     Indication: PULMONARY ARTERIAL HYPERTENSION
     Dosage: 288 MCG
     Route: 055
     Dates: start: 20130214

REACTIONS (4)
  - Renal failure [None]
  - Pneumonia [None]
  - Stent placement [None]
  - Surgical procedure repeated [None]
